FAERS Safety Report 8263854-7 (Version None)
Quarter: 2012Q2

REPORT INFORMATION
  Report Type: 
  Country: None (occurrence: None)
  Receive Date: 20120405
  Receipt Date: 20120403
  Transmission Date: 20120825
  Serious: Yes (Hospitalization, Other)
  Sender: FDA-Public Use
  Company Number: US-MERCK-1110USA03835

PATIENT
  Age: 72 Year
  Sex: Female
  Weight: 74 kg

DRUGS (3)
  1. FOSAMAX [Suspect]
     Indication: OSTEOPOROSIS
     Route: 048
     Dates: start: 20051101, end: 20101201
  2. ALENDRONATE SODIUM [Suspect]
     Indication: OSTEOPOROSIS
     Route: 048
     Dates: start: 20080520, end: 20080923
  3. ALENDRONATE SODIUM [Suspect]
     Route: 048
     Dates: start: 20100203, end: 20101106

REACTIONS (65)
  - ADVERSE EVENT [None]
  - PNEUMONIA [None]
  - DYSLIPIDAEMIA [None]
  - BACK PAIN [None]
  - BLOOD THYROID STIMULATING HORMONE INCREASED [None]
  - OEDEMA PERIPHERAL [None]
  - GASTRITIS [None]
  - CALCIUM DEFICIENCY [None]
  - BRADYCARDIA [None]
  - AORTIC VALVE CALCIFICATION [None]
  - EMPHYSEMA [None]
  - LACUNAR INFARCTION [None]
  - CRYING [None]
  - CHRONIC OBSTRUCTIVE PULMONARY DISEASE [None]
  - BLOOD CHOLESTEROL INCREASED [None]
  - PRESYNCOPE [None]
  - BRONCHITIS CHRONIC [None]
  - CAROTID ARTERY OCCLUSION [None]
  - HAEMORRHAGIC ANAEMIA [None]
  - MITRAL VALVE CALCIFICATION [None]
  - CORONARY ARTERY DISEASE [None]
  - SCAR [None]
  - KYPHOSIS [None]
  - HYPERTENSION [None]
  - FATIGUE [None]
  - FEMUR FRACTURE [None]
  - DYSPNOEA [None]
  - INTERSTITIAL LUNG DISEASE [None]
  - HERPES ZOSTER [None]
  - RECTAL HAEMORRHAGE [None]
  - PULMONARY GRANULOMA [None]
  - MUSCULOSKELETAL DISORDER [None]
  - INJURY [None]
  - HYPOTHYROIDISM [None]
  - TRANSIENT ISCHAEMIC ATTACK [None]
  - PULMONARY EMBOLISM [None]
  - INGUINAL HERNIA [None]
  - HIATUS HERNIA [None]
  - DIVERTICULUM INTESTINAL [None]
  - OESOPHAGITIS [None]
  - HEADACHE [None]
  - HAND FRACTURE [None]
  - ANXIETY [None]
  - ALVEOLITIS [None]
  - UPPER GASTROINTESTINAL HAEMORRHAGE [None]
  - GRANULOMATOUS LIVER DISEASE [None]
  - CARDIAC FAILURE CONGESTIVE [None]
  - CEREBRAL SMALL VESSEL ISCHAEMIC DISEASE [None]
  - ARTHRALGIA [None]
  - ASTHENIA [None]
  - GASTROOESOPHAGEAL REFLUX DISEASE [None]
  - ARTHRITIS [None]
  - JOINT SWELLING [None]
  - AORTIC ARTERIOSCLEROSIS [None]
  - CONSTIPATION [None]
  - FALL [None]
  - CARDIOMEGALY [None]
  - SPINAL COMPRESSION FRACTURE [None]
  - GASTRIC ULCER [None]
  - ANAEMIA [None]
  - VISUAL IMPAIRMENT [None]
  - DIZZINESS [None]
  - CEREBRAL ARTERIOSCLEROSIS [None]
  - OSTEOARTHRITIS [None]
  - EXCORIATION [None]
